FAERS Safety Report 10096447 (Version 2)
Quarter: 2014Q2

REPORT INFORMATION
  Report Type: Spontaneous
  Country: US (occurrence: US)
  Receive Date: 20140422
  Receipt Date: 20140422
  Transmission Date: 20141212
  Serious: No
  Sender: FDA-Public Use
  Company Number: US-GILEAD-2012-0061661

PATIENT
  Age: 82 Year
  Sex: Male

DRUGS (3)
  1. LETAIRIS [Suspect]
     Indication: PULMONARY HYPERTENSION
     Dosage: 10 MG, QD
     Dates: start: 20120327, end: 201208
  2. LETAIRIS [Suspect]
     Indication: SCLERODERMA
  3. ADCIRCA [Suspect]

REACTIONS (1)
  - Orthostatic hypotension [Unknown]
